FAERS Safety Report 4505456-1 (Version None)
Quarter: 2004Q4

REPORT INFORMATION
  Report Type: 
  Country: None (occurrence: None)
  Receive Date: 20041118
  Receipt Date: 20041116
  Transmission Date: 20050328
  Serious: Yes (Disabling)
  Sender: FDA-Public Use
  Company Number: 04-11-1588

PATIENT
  Age: 57 Year
  Sex: Female
  Weight: 89 kg

DRUGS (3)
  1. METFORMIN HCL [Suspect]
     Indication: DIABETES MELLITUS NON-INSULIN-DEPENDENT
     Dosage: 500MG ORAL
     Route: 048
     Dates: start: 20040603, end: 20041105
  2. DOTHIEPIN HYDROCHLORIDE [Concomitant]
  3. TRYPTOPHAN [Concomitant]

REACTIONS (1)
  - DEPRESSION [None]
